FAERS Safety Report 6423729-2 (Version None)
Quarter: 2009Q4

REPORT INFORMATION
  Report Type: 
  Country: None (occurrence: None)
  Receive Date: 20091030
  Receipt Date: 20091030
  Transmission Date: 20100525
  Serious: No
  Sender: FDA-Public Use
  Company Number: None

PATIENT
  Age: 88 Year
  Sex: Male
  Weight: 56.9 kg

DRUGS (1)
  1. CIPROFLOXACIN [Suspect]
     Dosage: 500 MG BID PO
     Route: 048
     Dates: start: 20090617, end: 20090624

REACTIONS (2)
  - PAIN IN EXTREMITY [None]
  - TENDONITIS [None]
